FAERS Safety Report 22290152 (Version 1)
Quarter: 2023Q2

REPORT INFORMATION
  Report Type: Report from Study
  Country: US (occurrence: US)
  Receive Date: 20230505
  Receipt Date: 20230505
  Transmission Date: 20230721
  Serious: Yes (Hospitalization)
  Sender: FDA-Public Use
  Company Number: US-ABBVIE-22K-163-4421534-00

PATIENT
  Age: 68 Year
  Sex: Female

DRUGS (3)
  1. IMBRUVICA [Suspect]
     Active Substance: IBRUTINIB
     Indication: Chronic lymphocytic leukaemia
     Dosage: 420 MILLIGRAM
     Route: 048
  2. IMBRUVICA [Suspect]
     Active Substance: IBRUTINIB
     Indication: Chronic lymphocytic leukaemia
     Route: 048
     Dates: start: 20191128
  3. IMBRUVICA [Suspect]
     Active Substance: IBRUTINIB
     Indication: Product used for unknown indication
     Dosage: 420 MG
     Route: 048
     Dates: start: 20160413, end: 20191128

REACTIONS (16)
  - Urinary tract infection [Unknown]
  - Drug resistance [Unknown]
  - Pneumonia [Unknown]
  - Oxygen saturation decreased [Unknown]
  - Illness [Unknown]
  - Hypotonic urinary bladder [Unknown]
  - White blood cell count increased [Unknown]
  - Anaemia [Unknown]
  - Hypertonic bladder [Unknown]
  - Hypotension [Unknown]
  - Asthenia [Unknown]
  - Infection [Unknown]
  - Urinary retention [Unknown]
  - Blood glucose increased [Unknown]
  - General symptom [Unknown]
  - Nodule [Unknown]

NARRATIVE: CASE EVENT DATE: 20220401
